FAERS Safety Report 5328924-1 (Version None)
Quarter: 2007Q2

REPORT INFORMATION
  Report Type: 
  Country: None (occurrence: None)
  Receive Date: 20070518
  Receipt Date: 20070508
  Transmission Date: 20071010
  Serious: Yes (Hospitalization, Other)
  Sender: FDA-Public Use
  Company Number: US-AMGEN-STX223811

PATIENT
  Sex: Female

DRUGS (4)
  1. ENBREL [Suspect]
     Indication: RHEUMATOID ARTHRITIS
     Route: 058
     Dates: start: 20050601
  2. METHOTREXATE [Concomitant]
  3. PREDNISONE TAB [Concomitant]
  4. LIPITOR [Concomitant]

REACTIONS (2)
  - CHOLECYSTITIS INFECTIVE [None]
  - HEPATOCELLULAR DAMAGE [None]
